FAERS Safety Report 5076366-9 (Version None)
Quarter: 2006Q3

REPORT INFORMATION
  Report Type: 
  Country: None (occurrence: None)
  Receive Date: 20060807
  Receipt Date: 20060516
  Transmission Date: 20061208
  Serious: Yes (Hospitalization, Other)
  Sender: FDA-Public Use
  Company Number: 2006040879

PATIENT
  Age: 45 Year
  Sex: Male
  Weight: 93 kg

DRUGS (5)
  1. BEXTRA [Suspect]
     Indication: INFLAMMATION
     Dosage: 1 IN 1 D, ORAL
     Route: 048
     Dates: start: 20050308, end: 20050316
  2. BEXTRA [Suspect]
     Indication: INJURY
     Dosage: 1 IN 1 D, ORAL
     Route: 048
     Dates: start: 20050308, end: 20050316
  3. BEXTRA [Suspect]
     Indication: PROCEDURAL PAIN
     Dosage: 1 IN 1 D, ORAL
     Route: 048
     Dates: start: 20050308, end: 20050316
  4. NOVALGIN (METAMIZOLE SODIUM) [Concomitant]
  5. HEXETIDINE (HEXETIDINE) [Concomitant]

REACTIONS (8)
  - BLOOD LACTATE DEHYDROGENASE INCREASED [None]
  - CHILLS [None]
  - COUGH [None]
  - DERMATITIS ALLERGIC [None]
  - DYSPHONIA [None]
  - HYPERSENSITIVITY [None]
  - LYMPHOPENIA [None]
  - PARAESTHESIA [None]
